FAERS Safety Report 17527665 (Version 3)
Quarter: 2020Q1

REPORT INFORMATION
  Report Type: Spontaneous
  Country: JP (occurrence: JP)
  Receive Date: 20200311
  Receipt Date: 20200317
  Transmission Date: 20200409
  Serious: Yes (Other)
  Sender: FDA-Public Use
  Company Number: JP-JNJFOC-20200242168

PATIENT
  Age: 64 Year
  Sex: Female

DRUGS (1)
  1. INVEGA [Suspect]
     Active Substance: PALIPERIDONE
     Indication: SCHIZOPHRENIA
     Dosage: PALIPERIDONE: 3 MG
     Route: 048

REACTIONS (2)
  - Oesophageal injury [Unknown]
  - Dysphagia [Unknown]
